FAERS Safety Report 7199725-7 (Version None)
Quarter: 2010Q4

REPORT INFORMATION
  Report Type: 
  Country: None (occurrence: None)
  Receive Date: 20101215
  Receipt Date: 20101201
  Transmission Date: 20110411
  Serious: Yes (Other)
  Sender: FDA-Public Use
  Company Number: 2010AP002575

PATIENT
  Sex: Male

DRUGS (3)
  1. PRAVASTATIN SODIUM [Suspect]
     Indication: HYPERCHOLESTEROLAEMIA
     Dosage: 40 MG;QD
  2. CIPROFIBRATE (CIPROFIBRATE) [Concomitant]
  3. CANDESARTAN CILEXETIL [Concomitant]

REACTIONS (2)
  - MYALGIA [None]
  - TENDON RUPTURE [None]
